FAERS Safety Report 4279352-1 (Version None)
Quarter: 2004Q1

REPORT INFORMATION
  Report Type: 
  Country: None (occurrence: None)
  Receive Date: 20040126
  Receipt Date: 20040126
  Transmission Date: 20041129
  Serious: Yes (Other)
  Sender: FDA-Public Use
  Company Number: None

PATIENT
  Age: 38 Year
  Sex: Female
  Weight: 68.0396 kg

DRUGS (1)
  1. PAXIL CR [Suspect]
     Indication: ANXIETY
     Dosage: 1 TABLET 1 TIME A D ORAL
     Route: 048
     Dates: start: 20010102, end: 20041231

REACTIONS (7)
  - ABNORMAL DREAMS [None]
  - ANGER [None]
  - ASTHENIA [None]
  - DEPRESSED MOOD [None]
  - DRUG WITHDRAWAL SYNDROME [None]
  - MOOD SWINGS [None]
  - NIGHTMARE [None]
